FAERS Safety Report 19821393 (Version 1)
Quarter: 2021Q3

REPORT INFORMATION
  Report Type: Spontaneous
  Country: US (occurrence: US)
  Receive Date: 20210913
  Receipt Date: 20210913
  Transmission Date: 20211014
  Serious: No
  Sender: FDA-Public Use
  Company Number: US-PFIZER INC-2021299708

PATIENT
  Age: 36 Year

DRUGS (2)
  1. SKELAXIN [Suspect]
     Active Substance: METAXALONE
     Indication: FIBROMYALGIA
  2. SKELAXIN [Suspect]
     Active Substance: METAXALONE
     Indication: ANKYLOSING SPONDYLITIS
     Dosage: 3 TABLETS, DAILY

REACTIONS (2)
  - Gastric disorder [Unknown]
  - Vomiting [Unknown]
